FAERS Safety Report 7215480-6 (Version None)
Quarter: 2011Q1

REPORT INFORMATION
  Report Type: 
  Country: None (occurrence: None)
  Receive Date: 20110107
  Receipt Date: 20110103
  Transmission Date: 20110831
  Serious: Yes (Other)
  Sender: FDA-Public Use
  Company Number: A0881674A

PATIENT
  Sex: Male

DRUGS (1)
  1. VOTRIENT [Suspect]
     Indication: RENAL CANCER
     Dosage: 800MG PER DAY
     Route: 048
     Dates: start: 20100909

REACTIONS (7)
  - DIARRHOEA [None]
  - DECREASED APPETITE [None]
  - BONE LESION [None]
  - SOFT TISSUE DISORDER [None]
  - THERAPEUTIC RESPONSE UNEXPECTED [None]
  - RENAL CANCER [None]
  - DEPRESSION [None]
